FAERS Safety Report 21865345 (Version 1)
Quarter: 2023Q1

REPORT INFORMATION
  Report Type: Spontaneous
  Country: US (occurrence: US)
  Receive Date: 20230116
  Receipt Date: 20230116
  Transmission Date: 20230418
  Serious: Yes (Other)
  Sender: FDA-Public Use
  Company Number: US-002147023-NVSC2023US007951

PATIENT
  Sex: Male
  Weight: 63 kg

DRUGS (1)
  1. PLUVICTO [Suspect]
     Active Substance: LUTETIUM LU-177 VIPIVOTIDE TETRAXETAN
     Indication: Hormone-refractory prostate cancer
     Dosage: 7.4 MBQ, ONCE/SINGLE (ONE SINGLE DOSE)
     Route: 042
     Dates: start: 20221205

REACTIONS (2)
  - Uveitis [Recovering/Resolving]
  - Visual impairment [Recovering/Resolving]
